FAERS Safety Report 9214150 (Version 2)
Quarter: 2013Q2

REPORT INFORMATION
  Report Type: Spontaneous
  Country: US (occurrence: US)
  Receive Date: 20130405
  Receipt Date: 20130502
  Transmission Date: 20140414
  Serious: Yes (Death, Hospitalization)
  Sender: FDA-Public Use
  Company Number: US-009507513-1304USA000067

PATIENT
  Age: 62 Year
  Sex: Male

DRUGS (10)
  1. PEGINTRON [Suspect]
     Dosage: 150 MICROGRAM, QW
     Route: 058
  2. VICTRELIS [Suspect]
  3. RIBAVIRIN (WARRICK) [Suspect]
  4. DRONABINOL [Concomitant]
     Dosage: 10 MG, UNK
  5. ZINC (UNSPECIFIED) [Concomitant]
     Dosage: 30 MG, UNK
  6. PAROXETINE [Concomitant]
     Dosage: 10 MG, UNK
  7. LORAZEPAM [Concomitant]
     Dosage: 0.5 MG, UNK
  8. OMEPRAZOLE [Concomitant]
     Dosage: 10 MG, UNK
  9. HYDROXYZINE HYDROCHLORIDE [Concomitant]
     Dosage: 10 MG, UNK
  10. XIFAXAN [Concomitant]
     Dosage: 200 MG, UNK

REACTIONS (2)
  - Death [Fatal]
  - General physical condition abnormal [Recovered/Resolved]
